FAERS Safety Report 14381902 (Version 5)
Quarter: 2020Q1

REPORT INFORMATION
  Report Type: Spontaneous
  Country: JP (occurrence: JP)
  Receive Date: 20180112
  Receipt Date: 20200130
  Transmission Date: 20200409
  Serious: Yes (Other)
  Sender: FDA-Public Use
  Company Number: JP-PFIZER INC-2018010502

PATIENT
  Age: 30 Year
  Sex: Female
  Weight: 52 kg

DRUGS (20)
  1. DEXAMETHASONE. [Suspect]
     Active Substance: DEXAMETHASONE
     Indication: DISSEMINATED TUBERCULOSIS
     Dosage: 19.6 MG, 1X/DAY
  2. DEXAMETHASONE. [Suspect]
     Active Substance: DEXAMETHASONE
     Indication: MENINGITIS TUBERCULOUS
  3. ETHAMBUTOL [Suspect]
     Active Substance: ETHAMBUTOL HYDROCHLORIDE
     Indication: DISSEMINATED TUBERCULOSIS
  4. PYRAZINAMIDE. [Suspect]
     Active Substance: PYRAZINAMIDE
     Indication: MENINGITIS TUBERCULOUS
  5. ISONIAZID. [Suspect]
     Active Substance: ISONIAZID
     Dosage: 100 MG WEEKLY, (3 IN 1 WK)
     Route: 037
  6. HEPARINE SODIUM [Suspect]
     Active Substance: HEPARIN SODIUM
     Indication: CEREBRAL INFARCTION
     Dosage: 10000 IU, UNK
     Route: 065
  7. RIFAMPIN. [Concomitant]
     Active Substance: RIFAMPIN
     Indication: DISSEMINATED TUBERCULOSIS
     Dosage: UNK
  8. ASPIRIN /00002701/ [Concomitant]
     Active Substance: ASPIRIN
     Indication: TRANSVERSE SINUS THROMBOSIS
     Dosage: 100 MG, UNK
     Route: 065
  9. STREPTOMYCIN [Concomitant]
     Active Substance: STREPTOMYCIN SULFATE
     Indication: DISSEMINATED TUBERCULOSIS
     Dosage: 1 G, 1X/DAY
     Route: 065
  10. MEROPENEM. [Suspect]
     Active Substance: MEROPENEM
     Indication: MENINGITIS TUBERCULOUS
     Dosage: 6 G, 1X/DAY
     Route: 042
  11. ETHAMBUTOL [Suspect]
     Active Substance: ETHAMBUTOL HYDROCHLORIDE
     Indication: MENINGITIS TUBERCULOUS
     Dosage: 750 MG, 1X/DAY
     Route: 065
  12. ASPIRIN /00002701/ [Concomitant]
     Active Substance: ASPIRIN
     Indication: NONINFECTIVE ENCEPHALITIS
  13. LEVOFLOXACIN. [Suspect]
     Active Substance: LEVOFLOXACIN
     Indication: MENINGITIS TUBERCULOUS
     Dosage: 500 MG, 1X/DAY
     Route: 065
  14. LEVOFLOXACIN. [Suspect]
     Active Substance: LEVOFLOXACIN
     Indication: DISSEMINATED TUBERCULOSIS
  15. RIFAMPICIN [Suspect]
     Active Substance: RIFAMPIN
     Indication: MENINGITIS TUBERCULOUS
     Dosage: 450 MG, 1X/DAY
     Route: 065
  16. PYRAZINAMIDE. [Suspect]
     Active Substance: PYRAZINAMIDE
     Indication: DISSEMINATED TUBERCULOSIS
     Dosage: 1.2 G, 1X/DAY
  17. STREPTOMYCIN [Concomitant]
     Active Substance: STREPTOMYCIN SULFATE
     Indication: MENINGITIS TUBERCULOUS
  18. ISONIAZID. [Suspect]
     Active Substance: ISONIAZID
     Dosage: 200 MG, 1X/DAY
  19. ISONIAZID. [Suspect]
     Active Substance: ISONIAZID
     Dosage: 300 MG, UNK
  20. ISONIAZID. [Suspect]
     Active Substance: ISONIAZID
     Dosage: 500 MG, UNK

REACTIONS (1)
  - Stillbirth [Unknown]
